FAERS Safety Report 8120458-4 (Version None)
Quarter: 2012Q1

REPORT INFORMATION
  Report Type: 
  Country: None (occurrence: None)
  Receive Date: 20120207
  Receipt Date: 20120206
  Transmission Date: 20120608
  Serious: No
  Sender: FDA-Public Use
  Company Number: US-BAYER-2012-011152

PATIENT
  Age: 31 Year
  Sex: Female
  Weight: 77 kg

DRUGS (3)
  1. ALEVE (CAPLET) [Suspect]
     Indication: TOOTHACHE
     Dosage: UNK
     Route: 048
     Dates: start: 20111201
  2. LISTERINE [HEXYLRESORCINOL] [Concomitant]
  3. ORA-JEL [Concomitant]

REACTIONS (2)
  - FOREIGN BODY [None]
  - NO ADVERSE EVENT [None]
